FAERS Safety Report 13308677 (Version 1)
Quarter: 2017Q1

REPORT INFORMATION
  Report Type: Spontaneous
  Country: US (occurrence: US)
  Receive Date: 20170308
  Receipt Date: 20170308
  Transmission Date: 20170428
  Serious: Yes (Life-Threatening, Other)
  Sender: FDA-Public Use
  Company Number: None

PATIENT
  Age: 28 Year
  Sex: Female
  Weight: 90.72 kg

DRUGS (6)
  1. IBUPROFEN. [Concomitant]
     Active Substance: IBUPROFEN
  2. ZOLOFT [Concomitant]
     Active Substance: SERTRALINE HYDROCHLORIDE
  3. VIVITROL [Suspect]
     Active Substance: NALTREXONE
  4. BUSPIRONE [Concomitant]
     Active Substance: BUSPIRONE HYDROCHLORIDE
  5. MULTI VITAMIN [Concomitant]
     Active Substance: VITAMINS
  6. SEREQUEL [Concomitant]

REACTIONS (9)
  - Nodule [None]
  - Paranoia [None]
  - Insomnia [None]
  - Depressed mood [None]
  - Suicidal behaviour [None]
  - Agitation [None]
  - Anxiety [None]
  - Aggression [None]
  - Migraine [None]

NARRATIVE: CASE EVENT DATE: 20170207
